APPROVED DRUG PRODUCT: TAGAMET HB
Active Ingredient: CIMETIDINE
Strength: 200MG
Dosage Form/Route: TABLET;ORAL
Application: N020238 | Product #002
Applicant: MEDTECH PRODUCTS INC
Approved: Aug 21, 1996 | RLD: Yes | RS: Yes | Type: OTC